FAERS Safety Report 10425439 (Version 2)
Quarter: 2014Q4

REPORT INFORMATION
  Report Type: Spontaneous
  Country: US (occurrence: None)
  Receive Date: 20140722
  Receipt Date: 20141020
  Transmission Date: 20150528
  Serious: No
  Sender: FDA-Public Use
  Company Number: AEGR000387

PATIENT
  Age: 45 Year
  Sex: Female
  Weight: 84.4 kg

DRUGS (15)
  1. KCI [Concomitant]
  2. OMEGA 3 6 9 [Concomitant]
  3. NITROGLYCERIN ( GLYCERYL TRINITRATE) [Concomitant]
  4. CARVEDILOL. [Concomitant]
     Active Substance: CARVEDILOL
  5. RANITIDINE ( RANITIDINE HYDROCHLORIDE) [Concomitant]
  6. JUXTAPID [Suspect]
     Active Substance: LOMITAPIDE MESYLATE
     Indication: TYPE IIA HYPERLIPIDAEMIA
     Route: 048
     Dates: start: 201403
  7. ZOCOR [Suspect]
     Active Substance: SIMVASTATIN
     Indication: PRODUCT USED FOR UNKNOWN INDICATION
  8. FUROSEMIDE ( FUROSEMIDE) [Concomitant]
  9. ASA [Concomitant]
     Active Substance: ASPIRIN
  10. VITAMIN E ( TOCOPHERYL ACID SUCCINATE) [Concomitant]
  11. POTASSIUM CHLORIDE. [Concomitant]
     Active Substance: POTASSIUM CHLORIDE
  12. SPIRONOLACTONE ( SPIRONOLACTONE) [Concomitant]
  13. VIT B12 ( CYANOCOBALAMIN) [Concomitant]
  14. OSPHENA ( OSPEMIFENE) [Concomitant]
  15. CITALOPRAM ( CITALOPRAM HYDROBROMIDE) [Concomitant]

REACTIONS (7)
  - Abdominal pain upper [None]
  - Weight fluctuation [None]
  - Nausea [None]
  - Diarrhoea [None]
  - Tachycardia [None]
  - Hepatic enzyme increased [None]
  - Aphthous stomatitis [None]

NARRATIVE: CASE EVENT DATE: 201403
